FAERS Safety Report 9253133 (Version 1)
Quarter: 2013Q2

REPORT INFORMATION
  Report Type: Spontaneous
  Country: IT (occurrence: IT)
  Receive Date: 20130424
  Receipt Date: 20130424
  Transmission Date: 20140414
  Serious: Yes (Hospitalization)
  Sender: FDA-Public Use
  Company Number: PHHY2013IT039361

PATIENT
  Age: 74 Year
  Sex: Male

DRUGS (14)
  1. LEVOFLOXACIN [Suspect]
     Indication: PYREXIA
     Dosage: 500 MG, DAILY
     Route: 048
     Dates: start: 20130405, end: 20130406
  2. PARACETAMOL [Suspect]
     Indication: PYREXIA
     Dosage: 500 MG, UNK
     Route: 048
     Dates: start: 20130405, end: 20130406
  3. INTERFERON ALFA-2A [Suspect]
     Indication: LEUKAEMIA
     Dosage: 1500 DF, TOTAL
     Route: 058
     Dates: start: 20130405, end: 20130405
  4. LASIX [Concomitant]
     Indication: CARDIAC FAILURE
  5. DILATREND [Concomitant]
     Indication: HYPERTENSION
  6. NITRODERM TTS [Concomitant]
     Indication: MYOCARDIAL ISCHAEMIA
     Dosage: 10 MG, PER DAY
     Route: 062
  7. ADALAT CRONO [Concomitant]
     Indication: CARDIAC FAILURE
  8. CARDIRENE [Concomitant]
     Indication: MYOCARDIAL ISCHAEMIA
  9. KCL-RETARD [Concomitant]
     Indication: CARDIAC FAILURE
  10. NOVONORM [Concomitant]
     Indication: DIABETES MELLITUS
  11. CACIT [Concomitant]
  12. ANTRA [Concomitant]
     Indication: PROPHYLAXIS
  13. OMNIC [Concomitant]
     Indication: BENIGN PROSTATIC HYPERPLASIA
  14. SODIUM BICARBONATE [Concomitant]

REACTIONS (1)
  - Urticaria [Recovered/Resolved]
